FAERS Safety Report 9503524 (Version 5)
Quarter: 2014Q4

REPORT INFORMATION
  Report Type: Report from Study
  Country: US (occurrence: US)
  Receive Date: 20130226
  Receipt Date: 20141216
  Transmission Date: 20150529
  Serious: Yes (Hospitalization)
  Sender: FDA-Public Use
  Company Number: PHEH2012US019821

PATIENT
  Sex: Female
  Weight: 46.25 kg

DRUGS (7)
  1. PULMOZYME [Concomitant]
     Active Substance: DORNASE ALFA
     Indication: PRODUCT USED FOR UNKNOWN INDICATION
     Route: 065
  2. MULTI VITAMIN [Concomitant]
     Active Substance: VITAMINS
     Indication: PRODUCT USED FOR UNKNOWN INDICATION
     Route: 065
  3. TOBI [Suspect]
     Active Substance: TOBRAMYCIN
     Indication: LUNG DISORDER
     Dosage: UNK
     Route: 055
     Dates: start: 2000, end: 201311
  4. TOBI PODHALER [Suspect]
     Active Substance: TOBRAMYCIN
     Indication: CYSTIC FIBROSIS
     Dosage: 112 MG, BID
     Route: 055
     Dates: start: 201311
  5. TOBI [Suspect]
     Active Substance: TOBRAMYCIN
     Indication: CYSTIC FIBROSIS
     Dosage: 300/ 5 MG/ML, 1 DF, BID
     Route: 055
     Dates: start: 1997
  6. TOBI PODHALER [Suspect]
     Active Substance: TOBRAMYCIN
     Indication: LUNG DISORDER
  7. LEVALBUTEROL//LEVOSALBUTAMOL [Concomitant]
     Indication: PRODUCT USED FOR UNKNOWN INDICATION
     Route: 065

REACTIONS (9)
  - Tachycardia [Recovering/Resolving]
  - Weight decreased [Not Recovered/Not Resolved]
  - White blood cell count increased [Recovering/Resolving]
  - Maternal exposure during pregnancy [Unknown]
  - Pneumothorax [Not Recovered/Not Resolved]
  - Cystic fibrosis [Recovering/Resolving]
  - Hypotonia [Not Recovered/Not Resolved]
  - Condition aggravated [Recovering/Resolving]
  - Pyrexia [Recovering/Resolving]
